FAERS Safety Report 10165894 (Version 2)
Quarter: 2014Q2

REPORT INFORMATION
  Report Type: Spontaneous
  Country: US (occurrence: US)
  Receive Date: 20140510
  Receipt Date: 20140510
  Transmission Date: 20141212
  Serious: No
  Sender: FDA-Public Use
  Company Number: US201206005277

PATIENT
  Age: 59 Year
  Sex: Female
  Weight: 83.9 kg

DRUGS (4)
  1. BYDUREON 2MG VIAL + SYRINGE [Suspect]
     Indication: DIABETES MELLITUS
     Route: 058
     Dates: start: 2013
  2. LANTUS [Concomitant]
  3. HUMIRA [Concomitant]
  4. INSULIN [Concomitant]
     Dosage: 1DF=15UNITS

REACTIONS (3)
  - Injection site haemorrhage [Recovered/Resolved]
  - Injection site nodule [Unknown]
  - Urticaria [Unknown]
